FAERS Safety Report 16025224 (Version 1)
Quarter: 2019Q1

REPORT INFORMATION
  Report Type: Spontaneous
  Country: US (occurrence: US)
  Receive Date: 20190301
  Receipt Date: 20190301
  Transmission Date: 20190418
  Serious: Yes (Life-Threatening)
  Sender: FDA-Public Use
  Company Number: US-ONY, INC.-2063416

PATIENT
  Age: 1 Day
  Sex: Female
  Weight: 2.72 kg

DRUGS (7)
  1. DEXTROSE. [Concomitant]
     Active Substance: DEXTROSE
  2. ACETAMINOPHEN. [Concomitant]
     Active Substance: ACETAMINOPHEN
  3. AMPICILLIN SODIUM. [Concomitant]
     Active Substance: AMPICILLIN SODIUM
  4. MORPHINE SULFATE. [Concomitant]
     Active Substance: MORPHINE SULFATE
  5. TPN ELECTROLYTES [Concomitant]
     Active Substance: CALCIUM CHLORIDE\MAGNESIUM CHLORIDE\POTASSIUM CHLORIDE\SODIUM ACETATE ANHYDROUS\SODIUM CHLORIDE
  6. INFASURF [Suspect]
     Active Substance: CALFACTANT
     Indication: NEONATAL RESPIRATORY DISTRESS SYNDROME
     Route: 039
     Dates: start: 20190213, end: 20190213
  7. GENTAMICIN. [Concomitant]
     Active Substance: GENTAMICIN

REACTIONS (1)
  - Endotracheal intubation complication [Recovered/Resolved]

NARRATIVE: CASE EVENT DATE: 20190213
